FAERS Safety Report 8937338 (Version 1)
Quarter: 2012Q4

REPORT INFORMATION
  Report Type: Spontaneous
  Country: US (occurrence: None)
  Receive Date: 20121128
  Receipt Date: 20121128
  Transmission Date: 20130627
  Serious: Yes (Other)
  Sender: FDA-Public Use
  Company Number: None

PATIENT
  Age: 11 Year
  Sex: Male
  Weight: 48.54 kg

DRUGS (1)
  1. ADDERALL [Suspect]
     Indication: ADHD
     Dosage: 1 per day
     Dates: start: 20111201, end: 20120711

REACTIONS (3)
  - Depression [None]
  - Crying [None]
  - Suicidal ideation [None]
